FAERS Safety Report 8143155-8 (Version None)
Quarter: 2012Q1

REPORT INFORMATION
  Report Type: 
  Country: None (occurrence: None)
  Receive Date: 20120217
  Receipt Date: 20120213
  Transmission Date: 20120608
  Serious: No
  Sender: FDA-Public Use
  Company Number: US-PFIZER INC-2012038868

PATIENT
  Sex: Female

DRUGS (2)
  1. VERAPAMIL HCL [Suspect]
     Indication: HEART RATE IRREGULAR
     Dosage: UNK
     Route: 048
  2. VERAPAMIL HCL [Suspect]
     Indication: ATRIAL FIBRILLATION

REACTIONS (4)
  - HEART RATE IRREGULAR [None]
  - PALLOR [None]
  - COLD SWEAT [None]
  - ATRIAL FIBRILLATION [None]
